FAERS Safety Report 6639563-4 (Version None)
Quarter: 2010Q1

REPORT INFORMATION
  Report Type: 
  Country: None (occurrence: None)
  Receive Date: 20100318
  Receipt Date: 20100304
  Transmission Date: 20100710
  Serious: Yes (Hospitalization)
  Sender: FDA-Public Use
  Company Number: CA-ELI_LILLY_AND_COMPANY-CA201003001610

PATIENT
  Age: 82 Year
  Sex: Female

DRUGS (14)
  1. FORTEO [Suspect]
     Indication: OSTEOPOROSIS
     Dosage: 20 UG, DAILY (1/D)
     Route: 058
     Dates: start: 20080411, end: 20080728
  2. FORTEO [Suspect]
     Dosage: 20 UG, QOD
     Route: 058
     Dates: start: 20080824, end: 20080101
  3. FORTEO [Suspect]
     Dosage: 20 UG, DAILY (1/D)
     Route: 058
     Dates: start: 20080915, end: 20081009
  4. FORTEO [Suspect]
     Dosage: 20 UG, QOD
     Route: 058
     Dates: start: 20090121, end: 20090101
  5. FORTEO [Suspect]
     Dosage: 20 UG, DAILY (1/D)
     Route: 058
     Dates: start: 20090225, end: 20090318
  6. FORTEO [Suspect]
     Dosage: 20 UG, QOD
     Route: 058
     Dates: start: 20090611, end: 20100216
  7. FORTEO [Suspect]
     Dosage: 20 UG, QOD
     Dates: start: 20100101
  8. APO-FUROSEMIDE [Concomitant]
     Dosage: 40 MG, UNK
  9. MICRO-K [Concomitant]
  10. LIPITOR [Concomitant]
     Dosage: 20 MG, UNK
  11. COUMADIN [Concomitant]
     Dosage: 1.5 MG, UNK
  12. ASPIRIN [Concomitant]
     Dosage: 81 MG, UNK
  13. PRAMIPEXOLE DIHYDROCHLORIDE [Concomitant]
  14. RAMIPRIL [Concomitant]

REACTIONS (3)
  - BLOOD CALCIUM INCREASED [None]
  - MYOCARDIAL INFARCTION [None]
  - PNEUMONIA [None]
